FAERS Safety Report 25830497 (Version 1)
Quarter: 2025Q3

REPORT INFORMATION
  Report Type: Spontaneous
  Country: US (occurrence: US)
  Receive Date: 20250922
  Receipt Date: 20250922
  Transmission Date: 20251020
  Serious: No
  Sender: ELI LILLY AND COMPANY
  Company Number: US-ELI_LILLY_AND_COMPANY-US202509010763

PATIENT
  Age: 56 Year
  Sex: Female

DRUGS (1)
  1. ZEPBOUND [Suspect]
     Active Substance: TIRZEPATIDE
     Indication: Product used for unknown indication
     Route: 058
     Dates: start: 202509

REACTIONS (5)
  - Pain [Unknown]
  - Lymphadenopathy [Recovering/Resolving]
  - Peripheral swelling [Unknown]
  - Synovial cyst [Unknown]
  - Arthropathy [Unknown]

NARRATIVE: CASE EVENT DATE: 20250901
